FAERS Safety Report 5905236-6 (Version None)
Quarter: 2008Q3

REPORT INFORMATION
  Report Type: 
  Country: None (occurrence: None)
  Receive Date: 20080909
  Receipt Date: 20080111
  Transmission Date: 20090109
  Serious: Yes (Hospitalization)
  Sender: FDA-Public Use
  Company Number: 163-20785-07101354

PATIENT
  Age: 44 Year
  Sex: Female

DRUGS (2)
  1. THALOMID [Suspect]
     Indication: MULTIPLE MYELOMA
     Dosage: 200 MG, 1 IN 1 D, ORAL : 50-150MG, DAILY, ORAL
     Route: 048
     Dates: start: 20070327, end: 20070501
  2. THALOMID [Suspect]
     Indication: MULTIPLE MYELOMA
     Dosage: 200 MG, 1 IN 1 D, ORAL : 50-150MG, DAILY, ORAL
     Route: 048
     Dates: start: 20070706

REACTIONS (1)
  - RENAL FAILURE ACUTE [None]
